FAERS Safety Report 9961587 (Version 1)
Quarter: 2014Q1

REPORT INFORMATION
  Report Type: Other
  Country: US (occurrence: US)
  Receive Date: 20140305
  Receipt Date: 20140305
  Transmission Date: 20141002
  Serious: Yes (Death)
  Sender: FDA-Public Use
  Company Number: US-FRI-1000054895

PATIENT
  Age: 40 Year
  Sex: Female

DRUGS (4)
  1. CITALOPRAM [Suspect]
  2. AMLODIPINE [Suspect]
  3. TRIMETHOBENZAMIDE [Suspect]
  4. BUPROPION [Suspect]

REACTIONS (1)
  - Completed suicide [Fatal]
